FAERS Safety Report 5678403-7 (Version None)
Quarter: 2008Q1

REPORT INFORMATION
  Report Type: 
  Country: None (occurrence: None)
  Receive Date: 20080320
  Receipt Date: 20080313
  Transmission Date: 20080703
  Serious: Yes (Death)
  Sender: FDA-Public Use
  Company Number: 056-C5013-07090007

PATIENT
  Age: 70 Year
  Sex: Male
  Weight: 81 kg

DRUGS (7)
  1. CC-5013 (LENALIDOMIDE) (CAPSULES) [Suspect]
     Indication: MULTIPLE MYELOMA
     Dosage: 25 MG, DAILY, ORAL
     Route: 048
     Dates: start: 20070518, end: 20070615
  2. VINCRISTINE [Concomitant]
  3. MELPHALAN (MELPHALAN) [Concomitant]
  4. CYCLOPHOSPHAMIDE [Concomitant]
  5. PREDNISONE TAB [Concomitant]
  6. CARMUSTINE [Concomitant]
  7. ADRIAMYCINE (DOXORUBICIN) [Concomitant]

REACTIONS (6)
  - ACUTE LEUKAEMIA [None]
  - CONDITION AGGRAVATED [None]
  - DISSEMINATED INTRAVASCULAR COAGULATION [None]
  - MULTIPLE MYELOMA [None]
  - RENAL FAILURE [None]
  - TUMOUR LYSIS SYNDROME [None]
